FAERS Safety Report 6889264-2 (Version None)
Quarter: 2010Q3

REPORT INFORMATION
  Report Type: 
  Country: None (occurrence: None)
  Receive Date: 20100730
  Receipt Date: 20080325
  Transmission Date: 20110219
  Serious: No
  Sender: FDA-Public Use
  Company Number: US-PFIZER INC-2008009125

PATIENT
  Sex: Male
  Weight: 89.81 kg

DRUGS (2)
  1. LIPITOR [Suspect]
     Indication: BLOOD CHOLESTEROL INCREASED
     Dates: start: 20080126
  2. VYTORIN [Concomitant]
     Dates: start: 20040101

REACTIONS (1)
  - DYSGEUSIA [None]
